FAERS Safety Report 24784231 (Version 3)
Quarter: 2025Q3

REPORT INFORMATION
  Report Type: Report from Study
  Country: EU (occurrence: EU)
  Receive Date: 20241227
  Receipt Date: 20250730
  Transmission Date: 20251020
  Serious: Yes (Death, Other)
  Sender: PFIZER
  Company Number: EU-TAKEDA-2022TUS019252

PATIENT
  Age: 81 Year
  Sex: Male
  Weight: 82 kg

DRUGS (3)
  1. BRENTUXIMAB VEDOTIN [Suspect]
     Active Substance: BRENTUXIMAB VEDOTIN
     Indication: Cutaneous T-cell lymphoma
     Dosage: 147.6 (UNIT NOT REPORTED), Q3WEEKS
     Route: 042
     Dates: start: 20210727, end: 20221025
  2. BISOPROLOL [Concomitant]
     Active Substance: BISOPROLOL
     Indication: Myocardial ischaemia
     Dosage: 5 MILLIGRAM, QD
     Route: 048
     Dates: start: 201205
  3. INDAPAMIDE [Concomitant]
     Active Substance: INDAPAMIDE
     Indication: Hypertension
     Dosage: UNK, QD
     Route: 048
     Dates: start: 201505

REACTIONS (2)
  - Death [Fatal]
  - Polyneuropathy [Recovering/Resolving]

NARRATIVE: CASE EVENT DATE: 20220208
